FAERS Safety Report 6984133-1 (Version None)
Quarter: 2010Q3

REPORT INFORMATION
  Report Type: 
  Country: None (occurrence: None)
  Receive Date: 20100915
  Receipt Date: 20090527
  Transmission Date: 20110219
  Serious: No
  Sender: FDA-Public Use
  Company Number: US-WYE-H09502809

PATIENT
  Sex: Male
  Weight: 111.23 kg

DRUGS (10)
  1. PRISTIQ [Suspect]
     Indication: DEPRESSION
     Route: 048
     Dates: start: 20090501, end: 20090522
  2. PRISTIQ [Suspect]
     Route: 048
     Dates: start: 20090525
  3. NOVOLOG [Concomitant]
  4. HYDROCODONE [Concomitant]
  5. LANTUS [Concomitant]
  6. CARISOPRODOL [Concomitant]
  7. METOCLOPRAMIDE [Concomitant]
  8. CARVEDILOL [Concomitant]
  9. OXYCODONE [Concomitant]
  10. ACETYLSALICYLIC ACID [Concomitant]

REACTIONS (4)
  - DYSGEUSIA [None]
  - INAPPROPRIATE SCHEDULE OF DRUG ADMINISTRATION [None]
  - NAUSEA [None]
  - PAIN [None]
